FAERS Safety Report 9372912 (Version 1)
Quarter: 2013Q2

REPORT INFORMATION
  Report Type: Spontaneous
  Country: US (occurrence: US)
  Receive Date: 20130627
  Receipt Date: 20130627
  Transmission Date: 20140414
  Serious: Yes (Other)
  Sender: FDA-Public Use
  Company Number: US-TARO-2013P1009596

PATIENT
  Age: 83 Year
  Sex: Male
  Weight: 86.18 kg

DRUGS (18)
  1. WARFARIN SODIUM [Suspect]
     Route: 048
     Dates: start: 20120306
  2. WARFARIN SODIUM [Suspect]
     Route: 048
     Dates: start: 20130501
  3. WARFARIN SODIUM [Suspect]
     Route: 048
     Dates: start: 20130501
  4. WARFARIN SODIUM TABLETS USP 5MG [Suspect]
     Route: 048
     Dates: start: 20120306
  5. WARFARIN SODIUM TABLETS USP 5MG [Suspect]
     Route: 048
     Dates: start: 20130501
  6. WARFARIN SODIUM TABLETS USP 5MG [Suspect]
     Route: 048
     Dates: start: 20130501
  7. WARFARIN SODIUM TABLETS USP 5MG [Suspect]
     Route: 048
     Dates: start: 20130501
  8. WARFARIN SODIUM TABLETS USP 5MG [Suspect]
     Route: 048
     Dates: start: 20130501
  9. WARFARIN SODIUM TABLETS USP 5MG [Suspect]
     Route: 048
     Dates: start: 20130501
  10. WARFARIN SODIUM TABLETS USP 5MG [Suspect]
     Route: 048
     Dates: start: 20130618, end: 20130619
  11. WARFARIN SODIUM TABLETS USP 5MG [Suspect]
     Route: 048
     Dates: start: 20130618, end: 20130619
  12. WARFARIN SODIUM TABLETS USP 5MG [Suspect]
     Route: 048
     Dates: start: 20130618, end: 20130619
  13. WARFARIN SODIUM TABLETS USP 5MG [Suspect]
     Route: 048
     Dates: start: 20130618, end: 20130619
  14. WARFARIN SODIUM TABLETS USP 5MG [Suspect]
     Route: 048
     Dates: start: 20130618, end: 20130619
  15. ALLOPURINOL [Concomitant]
  16. PRAVASTATIN [Concomitant]
  17. VICODIN [Concomitant]
  18. TERAZOSIN [Concomitant]

REACTIONS (4)
  - Drug ineffective [Recovered/Resolved]
  - International normalised ratio decreased [Recovered/Resolved]
  - Thrombosis [Unknown]
  - Product quality issue [Unknown]
